FAERS Safety Report 20967192 (Version 2)
Quarter: 2022Q3

REPORT INFORMATION
  Report Type: Spontaneous
  Country: US (occurrence: US)
  Receive Date: 20220616
  Receipt Date: 20220707
  Transmission Date: 20221027
  Serious: No
  Sender: FDA-Public Use
  Company Number: US-TAKEDA-2022TUS040319

PATIENT
  Sex: Female
  Weight: 65.76 kg

DRUGS (12)
  1. GATTEX [Suspect]
     Active Substance: TEDUGLUTIDE\WATER
     Indication: Short-bowel syndrome
     Dosage: UNK UNK, QD
     Route: 058
     Dates: start: 20220613
  2. GATTEX [Suspect]
     Active Substance: TEDUGLUTIDE\WATER
     Indication: Short-bowel syndrome
     Dosage: UNK UNK, QD
     Route: 058
     Dates: start: 20220613
  3. GATTEX [Suspect]
     Active Substance: TEDUGLUTIDE\WATER
     Indication: Short-bowel syndrome
     Dosage: UNK UNK, QD
     Route: 058
     Dates: start: 20220613
  4. GATTEX [Suspect]
     Active Substance: TEDUGLUTIDE\WATER
     Indication: Short-bowel syndrome
     Dosage: UNK UNK, QD
     Route: 058
     Dates: start: 20220613
  5. GATTEX [Suspect]
     Active Substance: TEDUGLUTIDE\WATER
     Indication: Inflammatory bowel disease
  6. GATTEX [Suspect]
     Active Substance: TEDUGLUTIDE\WATER
     Indication: Inflammatory bowel disease
  7. GATTEX [Suspect]
     Active Substance: TEDUGLUTIDE\WATER
     Indication: Inflammatory bowel disease
  8. GATTEX [Suspect]
     Active Substance: TEDUGLUTIDE\WATER
     Indication: Inflammatory bowel disease
  9. GATTEX [Suspect]
     Active Substance: TEDUGLUTIDE\WATER
     Indication: Crohn^s disease
  10. GATTEX [Suspect]
     Active Substance: TEDUGLUTIDE\WATER
     Indication: Crohn^s disease
  11. GATTEX [Suspect]
     Active Substance: TEDUGLUTIDE\WATER
     Indication: Crohn^s disease
  12. GATTEX [Suspect]
     Active Substance: TEDUGLUTIDE\WATER
     Indication: Crohn^s disease

REACTIONS (3)
  - Weight increased [Recovering/Resolving]
  - Joint swelling [Recovered/Resolved]
  - Peripheral swelling [Recovered/Resolved]
